FAERS Safety Report 11120164 (Version 1)
Quarter: 2015Q2

REPORT INFORMATION
  Report Type: Spontaneous
  Country: BR (occurrence: BR)
  Receive Date: 20150518
  Receipt Date: 20150518
  Transmission Date: 20150821
  Serious: Yes (Death, Other)
  Sender: FDA-Public Use
  Company Number: PHHO2015BR008882

PATIENT
  Sex: Male

DRUGS (1)
  1. ILARIS [Suspect]
     Active Substance: CANAKINUMAB
     Indication: ARTHRITIS
     Dosage: UNK
     Route: 058

REACTIONS (2)
  - Pulmonary haemorrhage [Fatal]
  - Infection [Fatal]
